FAERS Safety Report 9342927 (Version 2)
Quarter: 2013Q4

REPORT INFORMATION
  Report Type: Report from Study
  Country: FI (occurrence: FI)
  Receive Date: 20130611
  Receipt Date: 20131002
  Transmission Date: 20140711
  Serious: Yes (Hospitalization, Other)
  Sender: FDA-Public Use
  Company Number: FI-ELI_LILLY_AND_COMPANY-FI201306000181

PATIENT
  Age: 73 Year
  Sex: Female

DRUGS (10)
  1. TERIPARATIDE [Suspect]
     Indication: OSTEOPOROSIS
     Dosage: 20 UG, QD
     Route: 058
     Dates: start: 20120319
  2. CORTISONE [Concomitant]
     Dosage: 5 MG, QD
     Route: 065
  3. MAREVAN [Concomitant]
     Dosage: 5 MG, UNKNOWN
     Route: 065
  4. ATACAND [Concomitant]
     Indication: ATRIAL FIBRILLATION
     Dosage: 8 MG, UNKNOWN
     Route: 065
  5. OXYCONTIN [Concomitant]
     Dosage: 20 MG, UNKNOWN
     Route: 065
  6. IDEOS [Concomitant]
     Dosage: UNK, UNKNOWN
     Route: 065
  7. THYROXIN [Concomitant]
     Dosage: UNK, UNKNOWN
     Route: 065
  8. SERETIDE [Concomitant]
     Dosage: UNK, UNKNOWN
     Route: 065
  9. BUVENTOL [Concomitant]
     Dosage: UNK, UNKNOWN
     Route: 065
  10. BECLONASAL [Concomitant]
     Dosage: UNK, UNKNOWN
     Route: 065

REACTIONS (9)
  - Fall [Unknown]
  - Head injury [Not Recovered/Not Resolved]
  - Fall [Unknown]
  - Head injury [Not Recovered/Not Resolved]
  - Impaired healing [Not Recovered/Not Resolved]
  - Localised infection [Unknown]
  - Dizziness [Not Recovered/Not Resolved]
  - Wound [Not Recovered/Not Resolved]
  - Wound infection [Not Recovered/Not Resolved]
